FAERS Safety Report 23382853 (Version 3)
Quarter: 2024Q1

REPORT INFORMATION
  Report Type: Report from Study
  Country: US (occurrence: US)
  Receive Date: 20240109
  Receipt Date: 20240221
  Transmission Date: 20240410
  Serious: Yes (Hospitalization, Other)
  Sender: FDA-Public Use
  Company Number: US-INSMED, INC.-2023-05033-US

PATIENT
  Sex: Female

DRUGS (2)
  1. ARIKAYCE [Suspect]
     Active Substance: AMIKACIN
     Indication: Mycobacterium avium complex infection
     Dosage: 590 MILLIGRAM, UNK
     Route: 055
     Dates: start: 20221111
  2. ARIKAYCE [Suspect]
     Active Substance: AMIKACIN
     Dosage: 590 MILLIGRAM, TIW
     Route: 055
     Dates: start: 2024

REACTIONS (6)
  - Lung disorder [Unknown]
  - Road traffic accident [Unknown]
  - Pulmonary resection [Unknown]
  - Mycobacterium abscessus infection [Not Recovered/Not Resolved]
  - Product dose omission issue [Unknown]
  - Therapy interrupted [Unknown]
